FAERS Safety Report 15950692 (Version 1)
Quarter: 2019Q1

REPORT INFORMATION
  Report Type: Spontaneous
  Country: US (occurrence: US)
  Receive Date: 20190212
  Receipt Date: 20190212
  Transmission Date: 20190417
  Serious: Yes (Other)
  Sender: FDA-Public Use
  Company Number: US-009507513-1902USA003915

PATIENT
  Sex: Female

DRUGS (1)
  1. FOSAMAX [Suspect]
     Active Substance: ALENDRONATE SODIUM
     Route: 048

REACTIONS (7)
  - Diverticulitis [Unknown]
  - Liver disorder [Unknown]
  - Fatigue [Unknown]
  - Renal disorder [Unknown]
  - Vitamin D abnormal [Unknown]
  - Gastric ulcer [Unknown]
  - Haemochromatosis [Unknown]
